FAERS Safety Report 5918118-0 (Version None)
Quarter: 2008Q4

REPORT INFORMATION
  Report Type: 
  Country: None (occurrence: None)
  Receive Date: 20081014
  Receipt Date: 20081002
  Transmission Date: 20090506
  Serious: Yes (Death)
  Sender: FDA-Public Use
  Company Number: JP-WYE-H06318908

PATIENT
  Sex: Male
  Weight: 75 kg

DRUGS (14)
  1. ANCARON [Suspect]
     Indication: VENTRICULAR FIBRILLATION
     Dosage: 1.25 MG.ML AT 10 ML/MIN
     Route: 042
     Dates: start: 20071225, end: 20071225
  2. ANCARON [Suspect]
     Dosage: 1.50 MG/ML AT 33 ML/HR
     Route: 042
     Dates: start: 20071225, end: 20071226
  3. ANCARON [Suspect]
     Dosage: 1.5 MG/ML AT 17 ML/HR
     Route: 042
     Dates: start: 20071226, end: 20071227
  4. ASPIRIN [Concomitant]
     Route: 048
     Dates: start: 20071211, end: 20080318
  5. PRAVASTATIN SODIUM [Concomitant]
     Route: 048
     Dates: start: 20071211, end: 20080318
  6. BIOFERMIN [Concomitant]
     Route: 048
     Dates: start: 20071211, end: 20080318
  7. LENDORMIN [Concomitant]
     Route: 048
  8. NORVASC [Concomitant]
     Route: 048
  9. DIAZEPAM [Concomitant]
     Route: 048
  10. METFORMIN HCL [Concomitant]
     Route: 048
  11. CINAL [Concomitant]
     Route: 048
  12. NU-LOTAN [Concomitant]
     Route: 048
  13. ALDACTONE [Concomitant]
     Route: 048
     Dates: start: 20071219, end: 20080310
  14. ALOSENN [Concomitant]
     Route: 048
     Dates: start: 20071213, end: 20080310

REACTIONS (1)
  - ACUTE MYOCARDIAL INFARCTION [None]
